FAERS Safety Report 10201933 (Version 1)
Quarter: 2014Q2

REPORT INFORMATION
  Report Type: Report from Study
  Country: TW (occurrence: TW)
  Receive Date: 20140528
  Receipt Date: 20140528
  Transmission Date: 20141212
  Serious: Yes (Hospitalization)
  Sender: FDA-Public Use
  Company Number: TW-SA-2014SA065097

PATIENT
  Age: 2 Month
  Sex: Male

DRUGS (1)
  1. MYOZYME [Suspect]
     Indication: GLYCOGEN STORAGE DISEASE TYPE II
     Route: 042
     Dates: start: 20071205

REACTIONS (35)
  - Gastritis [Recovered/Resolved]
  - Upper gastrointestinal haemorrhage [Recovered/Resolved]
  - Gastrooesophageal reflux disease [Recovered/Resolved]
  - Bronchopneumonia [Recovered/Resolved]
  - Pneumonia aspiration [Recovered/Resolved]
  - Bronchopneumonia [Unknown]
  - Pneumonia [Recovered/Resolved]
  - Pneumonia aspiration [Recovered/Resolved]
  - Upper gastrointestinal haemorrhage [Recovered/Resolved]
  - Abdominal distension [Recovered/Resolved]
  - Pneumonia aspiration [Recovered/Resolved]
  - Pneumonia aspiration [Recovered/Resolved]
  - Pneumonia aspiration [Recovered/Resolved]
  - Oxygen saturation decreased [Recovered/Resolved]
  - Tracheostomy [Recovered/Resolved]
  - Pneumonia [Recovered/Resolved]
  - Pneumonia aspiration [Recovered/Resolved]
  - Gastrostomy [Recovered/Resolved]
  - Central venous catheterisation [Recovered/Resolved]
  - Bronchiolitis [Recovered/Resolved]
  - Pneumonia aspiration [Recovered/Resolved]
  - Ear tube insertion [Recovered/Resolved]
  - Ear operation [Recovered/Resolved]
  - Bronchoscopy [Recovered/Resolved]
  - Gastroenteritis [Recovered/Resolved]
  - Device related infection [Recovered/Resolved]
  - Removal of internal fixation [Recovered/Resolved]
  - Central venous catheterisation [Recovered/Resolved]
  - Rash [Recovered/Resolved]
  - Pyrexia [Recovered/Resolved]
  - Anaphylactic reaction [Recovered/Resolved]
  - Rash [Recovered/Resolved]
  - Pyrexia [Recovered/Resolved]
  - Rash [Recovered/Resolved]
  - Cyanosis [Recovered/Resolved]
